FAERS Safety Report 4606945-1 (Version None)
Quarter: 2005Q1

REPORT INFORMATION
  Report Type: 
  Country: None (occurrence: None)
  Receive Date: 20050314
  Receipt Date: 20050302
  Transmission Date: 20050727
  Serious: Yes (Hospitalization)
  Sender: FDA-Public Use
  Company Number: DE-JNJFOC-20050300606

PATIENT
  Age: 60 Year
  Sex: Female

DRUGS (12)
  1. TOPAMAX [Suspect]
     Route: 049
     Dates: start: 20010129, end: 20010207
  2. TOPAMAX [Suspect]
     Indication: DRUG USE FOR UNKNOWN INDICATION
     Route: 049
     Dates: start: 20010129, end: 20010207
  3. ERGENYL CHRONO [Concomitant]
     Route: 065
  4. ERGENYL CHRONO [Concomitant]
     Route: 065
  5. JATROSOM N [Concomitant]
     Route: 065
  6. JATROSOM N [Concomitant]
     Route: 065
  7. JATROSOM N [Concomitant]
     Route: 065
  8. HYPNOREX [Concomitant]
     Route: 065
  9. TAVOR [Concomitant]
     Route: 065
  10. VIGANTOLETTEN [Concomitant]
     Dosage: 1000 IE
     Route: 065
  11. MPA [Concomitant]
     Route: 065
  12. MAGNESIUM [Concomitant]
     Route: 065

REACTIONS (8)
  - COORDINATION ABNORMAL [None]
  - DIZZINESS [None]
  - FALL [None]
  - GAIT DISTURBANCE [None]
  - HEART RATE INCREASED [None]
  - MOTOR DYSFUNCTION [None]
  - NERVOUS SYSTEM DISORDER [None]
  - SLUGGISHNESS [None]
